FAERS Safety Report 5224421-2 (Version None)
Quarter: 2007Q1

REPORT INFORMATION
  Report Type: 
  Country: None (occurrence: None)
  Receive Date: 20070130
  Receipt Date: 20070118
  Transmission Date: 20070707
  Serious: No
  Sender: FDA-Public Use
  Company Number: FR-PFIZER INC-2006145541

PATIENT
  Sex: Female
  Weight: 57 kg

DRUGS (5)
  1. CELEBREX [Suspect]
     Indication: SCIATICA
     Route: 048
     Dates: start: 20060101, end: 20061116
  2. GABAPENTIN [Concomitant]
     Indication: SCIATICA
     Route: 048
     Dates: start: 20061110, end: 20061116
  3. ESCITALOPRAM OXALATE [Concomitant]
     Indication: DEPRESSION
     Route: 048
  4. PRAZEPAM [Concomitant]
     Indication: DEPRESSION
     Route: 048
     Dates: start: 20021119
  5. PARACETAMOL [Concomitant]
     Indication: BACK PAIN
     Dosage: DAILY DOSE:4000MG
     Route: 048
     Dates: start: 20060701

REACTIONS (1)
  - HAEMATOMA [None]
